FAERS Safety Report 13055036 (Version 6)
Quarter: 2017Q3

REPORT INFORMATION
  Report Type: Report from Study
  Country: JP (occurrence: JP)
  Receive Date: 20161222
  Receipt Date: 20170911
  Transmission Date: 20171127
  Serious: Yes (Other)
  Sender: FDA-Public Use
  Company Number: JP-ARIAD PHARMACEUTICALS, INC-2016JP007471

PATIENT
  Age: 47 Year
  Sex: Male
  Weight: 61.5 kg

DRUGS (4)
  1. ICLUSIG [Suspect]
     Active Substance: PONATINIB
     Dosage: 15 MG, DAILY DOSE
     Route: 048
     Dates: start: 20170206, end: 20170219
  2. ICLUSIG [Suspect]
     Active Substance: PONATINIB
     Indication: CHRONIC MYELOID LEUKAEMIA
     Dosage: 45 MG, DAILY DOSE
     Route: 048
     Dates: start: 20161205, end: 20161209
  3. ICLUSIG [Suspect]
     Active Substance: PONATINIB
     Dosage: 15 MG, DAILY DOSE
     Route: 048
     Dates: start: 20170221
  4. ICLUSIG [Suspect]
     Active Substance: PONATINIB
     Dosage: 30 MG, DAILY DOSE
     Route: 048
     Dates: start: 20170305

REACTIONS (3)
  - Platelet count decreased [Not Recovered/Not Resolved]
  - Face oedema [Unknown]
  - Rash [Recovering/Resolving]

NARRATIVE: CASE EVENT DATE: 20161212
